APPROVED DRUG PRODUCT: HYDROCODONE BITARTRATE AND CHLORPHENIRAMINE MALEATE
Active Ingredient: CHLORPHENIRAMINE MALEATE; HYDROCODONE BITARTRATE
Strength: 4MG/5ML;5MG/5ML
Dosage Form/Route: SOLUTION;ORAL
Application: A206438 | Product #001
Applicant: TRIS PHARMA INC
Approved: Jan 27, 2015 | RLD: No | RS: No | Type: DISCN